FAERS Safety Report 7413917-0 (Version None)
Quarter: 2011Q2

REPORT INFORMATION
  Report Type: 
  Country: None (occurrence: None)
  Receive Date: 20110414
  Receipt Date: 20110407
  Transmission Date: 20111010
  Serious: Yes (Hospitalization)
  Sender: FDA-Public Use
  Company Number: US-BIOGENIDEC-2011BI011040

PATIENT
  Age: 46 Year
  Sex: Female

DRUGS (1)
  1. AVONEX [Suspect]
     Indication: MULTIPLE SCLEROSIS
     Route: 030
     Dates: start: 20090212

REACTIONS (5)
  - POSTOPERATIVE ADHESION [None]
  - GENERAL SYMPTOM [None]
  - WEIGHT BEARING DIFFICULTY [None]
  - URINARY TRACT INFECTION [None]
  - FALL [None]
